FAERS Safety Report 24934102 (Version 1)
Quarter: 2025Q1

REPORT INFORMATION
  Report Type: Report from Study
  Country: US (occurrence: US)
  Receive Date: 20250206
  Receipt Date: 20250206
  Transmission Date: 20250408
  Serious: Yes (Hospitalization)
  Sender: EXELIXIS
  Company Number: US-EXELIXIS-CABO-24078384

PATIENT
  Age: 86 Year
  Sex: Female
  Weight: 60.317 kg

DRUGS (7)
  1. CABOMETYX [Suspect]
     Active Substance: CABOZANTINIB S-MALATE
     Indication: Renal cell carcinoma stage IV
     Dosage: 40 MG, QD
     Route: 048
     Dates: start: 20240530, end: 20240630
  2. LOSARTAN [Concomitant]
     Active Substance: LOSARTAN
  3. MIDODRINE [Concomitant]
     Active Substance: MIDODRINE
  4. SIMVASTATIN [Concomitant]
     Active Substance: SIMVASTATIN
  5. SODIUM BICARBONATE [Concomitant]
     Active Substance: SODIUM BICARBONATE
  6. GLIMEPIRIDE [Concomitant]
     Active Substance: GLIMEPIRIDE
  7. METOPROLOL [Concomitant]
     Active Substance: METOPROLOL

REACTIONS (5)
  - Nausea [Unknown]
  - Blood sodium decreased [Unknown]
  - Fatigue [Unknown]
  - Blood pressure decreased [Unknown]
  - Hospice care [Unknown]

NARRATIVE: CASE EVENT DATE: 20240630
